FAERS Safety Report 8681033 (Version 5)
Quarter: 2012Q4

REPORT INFORMATION
  Report Type: 
  Country: JP (occurrence: JP)
  Receive Date: 20120724
  Receipt Date: 20120905
  Transmission Date: 20130627
  Serious: Yes (Life-Threatening, Hospitalization, Other)
  Sender: FDA-Public Use
  Company Number: JP-PFIZER INC-2012175167

PATIENT
  Age: 78 Year
  Sex: Male

DRUGS (7)
  1. LYRICA [Suspect]
     Indication: NEURALGIA
     Dosage: 150 mg, 1x/day
     Route: 048
     Dates: start: 20120714, end: 20120719
  2. LIPITOR [Suspect]
     Indication: HYPERLIPIDAEMIA
     Dosage: 10 mg daily
     Route: 048
     Dates: start: 2010, end: 20120719
  3. EXFORGE [Suspect]
     Indication: HYPERTENSION
     Dosage: UNK
     Route: 048
  4. METHYCOBAL [Suspect]
     Indication: NEUROPATHY PERIPHERAL
     Dosage: UNK
     Route: 048
  5. MERISLON [Suspect]
     Indication: MENIERE^S DISEASE
     Dosage: UNK
     Route: 048
  6. GASCON [Suspect]
     Indication: GASTRITIS
     Dosage: UNK
     Route: 048
  7. POLYFUL [Concomitant]
     Dosage: UNK

REACTIONS (4)
  - Cardiac arrest [Recovered/Resolved]
  - Urinary incontinence [Recovered/Resolved]
  - Pneumonia aspiration [Unknown]
  - Gastric ulcer [None]
